FAERS Safety Report 13074740 (Version 1)
Quarter: 2016Q4

REPORT INFORMATION
  Report Type: Report from Study
  Country: IL (occurrence: IL)
  Receive Date: 20161230
  Receipt Date: 20161230
  Transmission Date: 20170207
  Serious: Yes (Other)
  Sender: FDA-Public Use
  Company Number: IL-INCYTE CORPORATION-2016IN007384

PATIENT
  Age: 84 Year
  Sex: Female

DRUGS (5)
  1. JAKAVI [Suspect]
     Active Substance: RUXOLITINIB
     Dosage: 15 MG, QD (ONE OF 10MG AND ANOTHER OF 5MG)
     Route: 048
     Dates: start: 20161221
  2. JAKAVI [Suspect]
     Active Substance: RUXOLITINIB
     Dosage: 10 MG, BID
     Route: 048
  3. JAKAVI [Suspect]
     Active Substance: RUXOLITINIB
     Dosage: 5 MG, BID
     Route: 048
     Dates: start: 20161128
  4. JAKAVI [Suspect]
     Active Substance: RUXOLITINIB
     Indication: MYELOFIBROSIS
     Dosage: 10 MG, BID
     Route: 048
     Dates: start: 20160927
  5. JAKAVI [Suspect]
     Active Substance: RUXOLITINIB
     Dosage: 20 MG, QD
     Route: 048

REACTIONS (6)
  - Platelet count decreased [Unknown]
  - Nasal dryness [Recovering/Resolving]
  - Anaemia [Unknown]
  - Cardiomyopathy [Not Recovered/Not Resolved]
  - Epistaxis [Recovered/Resolved]
  - Gait disturbance [Not Recovered/Not Resolved]

NARRATIVE: CASE EVENT DATE: 20161125
